FAERS Safety Report 4971401-8 (Version None)
Quarter: 2006Q2

REPORT INFORMATION
  Report Type: 
  Country: None (occurrence: None)
  Receive Date: 20060406
  Receipt Date: 20060330
  Transmission Date: 20061013
  Serious: Yes (Other)
  Sender: FDA-Public Use
  Company Number: DE-2006-007284

PATIENT
  Sex: Female

DRUGS (4)
  1. ULTRAVIST 370 [Suspect]
     Indication: ARTERIOGRAM CORONARY
     Dosage: 230 ML, 1 DOSE, INTRA-ARTERIAL
     Route: 013
     Dates: start: 20060324, end: 20060324
  2. CLOPIDOGREL (CLOPIDOGREL) [Suspect]
     Indication: STENT PLACEMENT
     Dates: start: 20060324
  3. ACETYLSALICYLIC ACID SRT [Suspect]
     Indication: STENT PLACEMENT
     Dates: start: 20060324
  4. CORONARY VASODILATORS [Concomitant]

REACTIONS (2)
  - AGRANULOCYTOSIS [None]
  - LEUKOPENIA [None]
